FAERS Safety Report 4567192-5 (Version None)
Quarter: 2005Q1

REPORT INFORMATION
  Report Type: 
  Country: None (occurrence: None)
  Receive Date: 20050201
  Receipt Date: 20041201
  Transmission Date: 20050727
  Serious: Yes (Other)
  Sender: FDA-Public Use
  Company Number: JP-GLAXOSMITHKLINE-B0359067A

PATIENT
  Age: 76 Year
  Sex: Female

DRUGS (13)
  1. VALTREX [Suspect]
     Indication: HERPES ZOSTER
     Dosage: 500MG TWICE PER DAY
     Route: 048
     Dates: start: 20041115, end: 20041122
  2. ASPENON [Concomitant]
     Route: 048
  3. TAKEPRON [Concomitant]
     Route: 048
  4. DIOVAN [Concomitant]
     Route: 048
  5. PHYSIO 35 [Concomitant]
     Route: 042
  6. MEDIJECT K [Concomitant]
  7. CALCICOL [Concomitant]
     Route: 042
  8. MUCOSTA [Concomitant]
     Route: 048
  9. LOXONIN [Concomitant]
     Route: 048
  10. DIANEAL-PD-4 1.5 [Concomitant]
     Route: 033
  11. DIANEAL-PD-4 2.5 [Concomitant]
     Route: 033
  12. EXTRANEAL [Concomitant]
     Route: 033
  13. ANDERM [Concomitant]
     Route: 061

REACTIONS (5)
  - ALANINE AMINOTRANSFERASE INCREASED [None]
  - ASPARTATE AMINOTRANSFERASE INCREASED [None]
  - BLOOD ALKALINE PHOSPHATASE INCREASED [None]
  - BLOOD LACTATE DEHYDROGENASE INCREASED [None]
  - HEPATIC FUNCTION ABNORMAL [None]
